FAERS Safety Report 9115817 (Version 1)
Quarter: 2013Q1

REPORT INFORMATION
  Report Type: Spontaneous
  Country: IT (occurrence: IT)
  Receive Date: 20130225
  Receipt Date: 20130225
  Transmission Date: 20140127
  Serious: Yes (Death, Hospitalization)
  Sender: FDA-Public Use
  Company Number: IT-BAYER-2013-022561

PATIENT
  Age: 91 Year
  Sex: Female

DRUGS (7)
  1. CARDIOASPIRIN [Suspect]
     Indication: ACUTE MYOCARDIAL INFARCTION
     Dosage: 100 MG, QD
     Route: 048
     Dates: start: 20110420, end: 20120305
  2. COUMADIN [Suspect]
     Indication: ACUTE MYOCARDIAL INFARCTION
     Dosage: 5 MG, QD
     Route: 048
     Dates: start: 20120120, end: 20120305
  3. BRUFEN [Suspect]
     Indication: BONE PAIN
     Dosage: 600 MG, QD
     Route: 048
     Dates: start: 20110427, end: 20120305
  4. ACETYLSALICYLIC ACID [Concomitant]
     Dosage: UNK
  5. LANSOPRAZOLE [Concomitant]
     Dosage: UNK
  6. LASIX [Concomitant]
     Dosage: UNK
  7. NORVASC [Concomitant]
     Dosage: UNK

REACTIONS (1)
  - Anaemia [Fatal]
